FAERS Safety Report 9936763 (Version 1)
Quarter: 2014Q1

REPORT INFORMATION
  Report Type: Spontaneous
  Country: US (occurrence: None)
  Receive Date: 20140107
  Receipt Date: 20140107
  Transmission Date: 20141002
  Serious: Yes (Other)
  Sender: FDA-Public Use
  Company Number: 2012AP002981

PATIENT
  Age: 77 Year
  Sex: Female

DRUGS (2)
  1. IBANDRONATE SODIUM [Suspect]
     Indication: PRODUCT USED FOR UNKNOWN INDICATION
     Dates: start: 201209
  2. VITAMINS NOS [Concomitant]

REACTIONS (2)
  - Pain [None]
  - Constipation [None]
